FAERS Safety Report 18915826 (Version 2)
Quarter: 2021Q1

REPORT INFORMATION
  Report Type: Spontaneous
  Country: IT (occurrence: IT)
  Receive Date: 20210219
  Receipt Date: 20210226
  Transmission Date: 20210420
  Serious: Yes (Other)
  Sender: FDA-Public Use
  Company Number: IT-ROCHE-2773043

PATIENT
  Age: 34 Year
  Sex: Female

DRUGS (1)
  1. OCREVUS [Suspect]
     Active Substance: OCRELIZUMAB
     Indication: RELAPSING-REMITTING MULTIPLE SCLEROSIS
     Route: 041
     Dates: start: 20191206

REACTIONS (4)
  - Pustular psoriasis [Not Recovered/Not Resolved]
  - Skin exfoliation [Not Recovered/Not Resolved]
  - Skin fissures [Not Recovered/Not Resolved]
  - Rash [Not Recovered/Not Resolved]

NARRATIVE: CASE EVENT DATE: 20200601
